FAERS Safety Report 5273623-8 (Version None)
Quarter: 2007Q1

REPORT INFORMATION
  Report Type: 
  Country: None (occurrence: None)
  Receive Date: 20070321
  Receipt Date: 20070321
  Transmission Date: 20070707
  Serious: Yes (Other)
  Sender: FDA-Public Use
  Company Number: None

PATIENT
  Age: 39 Year
  Sex: Female

DRUGS (2)
  1. ANTICEPTIC TOWLETTE [Suspect]
     Dates: end: 20070221
  2. AMMONIA INHALANT [Suspect]

REACTIONS (4)
  - DISCOMFORT [None]
  - DRUG DISPENSING ERROR [None]
  - GENITAL BURNING SENSATION [None]
  - MEDICATION ERROR [None]
